FAERS Safety Report 4796820-4 (Version None)
Quarter: 2005Q4

REPORT INFORMATION
  Report Type: 
  Country: None (occurrence: None)
  Receive Date: 20051011
  Receipt Date: 20051011
  Transmission Date: 20060501
  Serious: Yes (Life-Threatening, Hospitalization)
  Sender: FDA-Public Use
  Company Number: None

PATIENT
  Age: 51 Year
  Sex: Female

DRUGS (1)
  1. INFLIXIMAB [Suspect]
     Indication: CROHN'S DISEASE
     Dosage: 500MG EVERY 3 WEEKS IV DRIP
     Route: 041
     Dates: start: 20050927, end: 20050927

REACTIONS (6)
  - CARDIO-RESPIRATORY ARREST [None]
  - HEADACHE [None]
  - INFUSION RELATED REACTION [None]
  - PALLOR [None]
  - PRURITUS [None]
  - URTICARIA [None]
